FAERS Safety Report 5474571-0 (Version None)
Quarter: 2007Q3

REPORT INFORMATION
  Report Type: 
  Country: None (occurrence: None)
  Receive Date: 20070831
  Receipt Date: 20070424
  Transmission Date: 20080115
  Serious: No
  Sender: FDA-Public Use
  Company Number: 240461

PATIENT
  Age: 79 Year
  Sex: Female

DRUGS (5)
  1. LUCENTIS [Suspect]
     Indication: DRUG USE FOR UNKNOWN INDICATION
     Dates: start: 20070327
  2. BENICAR [Concomitant]
  3. NORVASC [Concomitant]
  4. CALCIUM (CALCIUM NOS) [Concomitant]
  5. COLCHICUM JTL LIQ [Concomitant]

REACTIONS (1)
  - BLOOD PRESSURE INCREASED [None]
